FAERS Safety Report 4453742-6 (Version None)
Quarter: 2004Q3

REPORT INFORMATION
  Report Type: 
  Country: None (occurrence: None)
  Receive Date: 20040920
  Receipt Date: 20040311
  Transmission Date: 20050211
  Serious: Yes (Other)
  Sender: FDA-Public Use
  Company Number: 200410804EU

PATIENT
  Age: 74 Year
  Sex: Female

DRUGS (7)
  1. ENOXAPARIN SODIUM [Suspect]
     Indication: COAGULOPATHY
  2. ASPIRIN [Concomitant]
  3. WARFANT [Concomitant]
  4. ATORVASTATIN CALCIUM [Concomitant]
  5. SSRI [Concomitant]
  6. PERINDOPRIL [Concomitant]
  7. ALBUTEROL [Concomitant]

REACTIONS (3)
  - HYPOTENSION [None]
  - RENAL IMPAIRMENT [None]
  - RETROPERITONEAL HAEMATOMA [None]
